FAERS Safety Report 17553868 (Version 4)
Quarter: 2021Q3

REPORT INFORMATION
  Report Type: Spontaneous
  Country: DE (occurrence: DE)
  Receive Date: 20200318
  Receipt Date: 20210820
  Transmission Date: 20211014
  Serious: Yes (Hospitalization, Other)
  Sender: FDA-Public Use
  Company Number: DE-AUROBINDO-AUR-APL-2020-013027

PATIENT
  Sex: Male

DRUGS (13)
  1. CLOZAPINE. [Suspect]
     Active Substance: CLOZAPINE
     Dosage: 100 MILLIGRAM, ONCE A DAY
     Route: 065
     Dates: start: 2006, end: 2016
  2. TAVOR [SIMVASTATIN] [Suspect]
     Active Substance: SIMVASTATIN
     Indication: PRODUCT USED FOR UNKNOWN INDICATION
     Dosage: UNK
     Route: 065
     Dates: end: 2018
  3. LEPONEX [Suspect]
     Active Substance: CLOZAPINE
     Indication: PRODUCT USED FOR UNKNOWN INDICATION
     Dosage: 300 MILLIGRAM, ONCE A DAY(300 MILLIGRAM, QD )
     Route: 065
     Dates: start: 2001
  4. PAROXAT [Suspect]
     Active Substance: PAROXETINE HYDROCHLORIDE
     Dosage: UNK
     Route: 065
     Dates: end: 2018
  5. QUETIAPINE. [Concomitant]
     Active Substance: QUETIAPINE
     Indication: SLEEP DISORDER
     Dosage: 25 MILLIGRAM
     Route: 065
  6. CLOZAPINE. [Suspect]
     Active Substance: CLOZAPINE
     Dosage: 300 MILLIGRAM
     Route: 065
     Dates: start: 2001
  7. CLOZAPINE. [Suspect]
     Active Substance: CLOZAPINE
     Dosage: 50 MILLIGRAM, ONCE A DAY
     Route: 065
     Dates: start: 2016
  8. PAROXAT [Suspect]
     Active Substance: PAROXETINE HYDROCHLORIDE
     Indication: PRODUCT USED FOR UNKNOWN INDICATION
     Dosage: 60 MILLIGRAM
     Route: 065
     Dates: start: 2016
  9. SIMVASTATIN. [Concomitant]
     Active Substance: SIMVASTATIN
     Indication: PRODUCT USED FOR UNKNOWN INDICATION
     Dosage: UNK
     Route: 065
     Dates: start: 2018
  10. CLOZAPINE. [Suspect]
     Active Substance: CLOZAPINE
     Indication: PRODUCT USED FOR UNKNOWN INDICATION
     Dosage: 200 MILLIGRAM, ONCE A DAY
     Route: 065
  11. PAROXAT [Concomitant]
     Active Substance: PAROXETINE HYDROCHLORIDE
     Indication: PRODUCT USED FOR UNKNOWN INDICATION
     Dosage: 160 MILLIGRAM, ONCE A DAY
     Route: 065
     Dates: start: 2016
  12. CLOZAPINE. [Suspect]
     Active Substance: CLOZAPINE
     Dosage: UNK UNK, ONCE A DAY
     Route: 065
     Dates: start: 2018, end: 2018
  13. PAROXAT [Concomitant]
     Active Substance: PAROXETINE HYDROCHLORIDE
     Dosage: UNK, ONCE A DAY
     Route: 065
     Dates: start: 2018

REACTIONS (36)
  - Craniocerebral injury [Unknown]
  - Acne [Not Recovered/Not Resolved]
  - Neck pain [Not Recovered/Not Resolved]
  - Suicide attempt [Unknown]
  - Altered state of consciousness [Unknown]
  - Spinal disorder [Not Recovered/Not Resolved]
  - Disturbance in attention [Not Recovered/Not Resolved]
  - Muscle spasms [Not Recovered/Not Resolved]
  - Stress [Not Recovered/Not Resolved]
  - Virilism [Unknown]
  - Derealisation [Unknown]
  - Dissociation [Unknown]
  - Immunodeficiency [Unknown]
  - Schizophrenia [Unknown]
  - Seborrhoea [Not Recovered/Not Resolved]
  - Bruxism [Not Recovered/Not Resolved]
  - Insomnia [Not Recovered/Not Resolved]
  - Sleep deficit [Not Recovered/Not Resolved]
  - Cardiac disorder [Unknown]
  - Obsessive-compulsive disorder [Not Recovered/Not Resolved]
  - Withdrawal syndrome [Unknown]
  - Obsessive thoughts [Not Recovered/Not Resolved]
  - Headache [Not Recovered/Not Resolved]
  - Nausea [Unknown]
  - Hyperhidrosis [Not Recovered/Not Resolved]
  - Thinking abnormal [Not Recovered/Not Resolved]
  - Dependence [Unknown]
  - Dizziness [Unknown]
  - Fear [Unknown]
  - Suicidal ideation [Unknown]
  - Aggression [Not Recovered/Not Resolved]
  - Constipation [Not Recovered/Not Resolved]
  - Discomfort [Not Recovered/Not Resolved]
  - Arthralgia [Not Recovered/Not Resolved]
  - Tension headache [Not Recovered/Not Resolved]
  - Hypertrichosis [Unknown]
